FAERS Safety Report 16821788 (Version 1)
Quarter: 2019Q3

REPORT INFORMATION
  Report Type: Spontaneous
  Country: PL (occurrence: PL)
  Receive Date: 20190918
  Receipt Date: 20190918
  Transmission Date: 20191005
  Serious: Yes (Other)
  Sender: FDA-Public Use
  Company Number: PL-MYLANLABS-2019M1086248

PATIENT
  Age: 65 Year
  Sex: Female

DRUGS (1)
  1. ATORVASTATIN [Suspect]
     Active Substance: ATORVASTATIN
     Indication: PRODUCT USED FOR UNKNOWN INDICATION
     Dosage: UNK
     Route: 065
     Dates: start: 2016, end: 20160721

REACTIONS (6)
  - Carcinoembryonic antigen increased [Unknown]
  - Visual impairment [Unknown]
  - Thyroid cancer metastatic [Unknown]
  - Seizure [Unknown]
  - Arrhythmia [Unknown]
  - Blood calcitonin increased [Unknown]

NARRATIVE: CASE EVENT DATE: 2016
